FAERS Safety Report 13802958 (Version 1)
Quarter: 2017Q3

REPORT INFORMATION
  Report Type: Other
  Country: DE (occurrence: DE)
  Receive Date: 20170728
  Receipt Date: 20170728
  Transmission Date: 20171127
  Serious: No
  Sender: FDA-Public Use
  Company Number: DE-LUPIN PHARMACEUTICALS INC.-E2B_00006798

PATIENT
  Age: 56 Year
  Sex: Female

DRUGS (10)
  1. LAMOTRIGINE. [Suspect]
     Active Substance: LAMOTRIGINE
     Dosage: UNK UNK,UNK,
     Route: 048
     Dates: start: 20150731, end: 20150816
  2. OPIPRAMOL [Concomitant]
     Active Substance: OPIPRAMOL
     Indication: PRODUCT USED FOR UNKNOWN INDICATION
     Dosage: UNK UNK,UNK,
     Route: 048
     Dates: start: 20150604, end: 20150713
  3. LAMOTRIGINE. [Suspect]
     Active Substance: LAMOTRIGINE
     Indication: MOOD ALTERED
     Dosage: UNK UNK,UNK,
     Route: 048
     Dates: start: 20150604, end: 20150617
  4. LAMOTRIGINE. [Suspect]
     Active Substance: LAMOTRIGINE
     Dosage: UNK UNK,UNK,
     Route: 048
     Dates: start: 20150714, end: 20150730
  5. LAMOTRIGINE. [Suspect]
     Active Substance: LAMOTRIGINE
     Dosage: UNK UNK,UNK,
     Route: 048
     Dates: start: 20150817, end: 20150820
  6. LAMOTRIGINE. [Suspect]
     Active Substance: LAMOTRIGINE
     Dosage: UNK UNK,UNK,
     Route: 048
     Dates: start: 20150702, end: 20150713
  7. OPIPRAMOL [Concomitant]
     Active Substance: OPIPRAMOL
     Dosage: UNK UNK,UNK,
     Route: 048
     Dates: start: 20150714, end: 20150730
  8. VOTUM [Concomitant]
     Active Substance: OLMESARTAN MEDOXOMIL
     Indication: PRODUCT USED FOR UNKNOWN INDICATION
     Dosage: UNK UNK,UNK,
     Route: 048
  9. LAMOTRIGINE. [Suspect]
     Active Substance: LAMOTRIGINE
     Dosage: UNK UNK,UNK,
     Route: 048
     Dates: start: 20150618, end: 20150701
  10. RISPERIDON [Concomitant]
     Active Substance: RISPERIDONE
     Indication: PRODUCT USED FOR UNKNOWN INDICATION
     Dosage: UNK UNK,UNK,
     Route: 048
     Dates: start: 20150611, end: 20150907

REACTIONS (7)
  - Mobility decreased [Recovered/Resolved]
  - Dermatitis allergic [Recovered/Resolved]
  - Joint swelling [Recovered/Resolved]
  - Sleep disorder [Recovered/Resolved]
  - Restlessness [Recovered/Resolved]
  - Pain [Recovered/Resolved]
  - Limb discomfort [Recovered/Resolved]

NARRATIVE: CASE EVENT DATE: 20150611
